FAERS Safety Report 8501906-4 (Version None)
Quarter: 2012Q3

REPORT INFORMATION
  Report Type: 
  Country: None (occurrence: None)
  Receive Date: 20120711
  Receipt Date: 20120707
  Transmission Date: 20120928
  Serious: Yes (Death, Other)
  Sender: FDA-Public Use
  Company Number: PHHY2011IT90633

PATIENT
  Age: 12 Year
  Sex: Female

DRUGS (6)
  1. CYCLOPHOSPHAMIDE [Concomitant]
  2. CYCLOSPORINE [Suspect]
  3. ANTI-THYMOCYTE GLOBULIN NOS [Concomitant]
  4. BUSULFAN [Concomitant]
  5. METHOTREXATE [Concomitant]
  6. MELPHALAN HYDROCHLORIDE [Concomitant]

REACTIONS (7)
  - POSTERIOR REVERSIBLE ENCEPHALOPATHY SYNDROME [None]
  - NEUROTOXICITY [None]
  - ACUTE MYELOID LEUKAEMIA [None]
  - BRAIN OEDEMA [None]
  - HYPERTENSION [None]
  - TOXICITY TO VARIOUS AGENTS [None]
  - STATUS EPILEPTICUS [None]
